FAERS Safety Report 24330032 (Version 1)
Quarter: 2024Q3

REPORT INFORMATION
  Report Type: Report from Study
  Country: US (occurrence: US)
  Receive Date: 20240917
  Receipt Date: 20240917
  Transmission Date: 20241016
  Serious: Yes (Hospitalization)
  Sender: JOHNSON AND JOHNSON
  Company Number: US-JNJFOC-20240919747

PATIENT
  Sex: Male

DRUGS (1)
  1. SPRAVATO [Suspect]
     Active Substance: ESKETAMINE
     Indication: Depression
     Dosage: ^84 MG, 182 TOTAL DOSES^
     Dates: start: 20200728, end: 20240906

REACTIONS (4)
  - Suicidal ideation [Unknown]
  - Product dose omission issue [Unknown]
  - Fatigue [Unknown]
  - Dissociation [Unknown]
